FAERS Safety Report 11422004 (Version 1)
Quarter: 2015Q3

REPORT INFORMATION
  Report Type: Spontaneous
  Country: IT (occurrence: IT)
  Receive Date: 20150827
  Receipt Date: 20150827
  Transmission Date: 20151125
  Serious: Yes (Other)
  Sender: FDA-Public Use
  Company Number: IT-ROCHE-1626536

PATIENT
  Age: 64 Year
  Sex: Male
  Weight: 76 kg

DRUGS (6)
  1. MABTHERA [Suspect]
     Active Substance: RITUXIMAB
     Indication: LYMPHOPLASMACYTOID LYMPHOMA/IMMUNOCYTOMA
     Dosage: 1 VIAL 500 MG 50 ML
     Route: 042
     Dates: start: 20150623, end: 20150623
  2. ZOLOFT [Concomitant]
     Active Substance: SERTRALINE HYDROCHLORIDE
     Dosage: ^50 MG FILM-COATED TABLETS^ 15 SCORED TABLETS
     Route: 048
  3. ESOMEPRAZOLE SODIUM. [Concomitant]
     Active Substance: ESOMEPRAZOLE SODIUM
     Route: 048
  4. ENDOXAN [Concomitant]
     Active Substance: CYCLOPHOSPHAMIDE
     Dosage: ^50 MG COATED TABLETS^ 50 TABLETS
     Route: 048
     Dates: start: 20150624, end: 20150628
  5. EUTIROX [Concomitant]
     Active Substance: LEVOTHYROXINE SODIUM
     Dosage: 75 MICROGRAMS TABLETS 50 TABLETS
     Route: 048
  6. SOLDESAM [Concomitant]
     Active Substance: DEXAMETHASONE
     Dosage: ^0.2% ORAL DROPS, SOLUTION^ 10 ML BOTTL
     Route: 048
     Dates: start: 20150624, end: 20150625

REACTIONS (1)
  - Hemiplegia [Unknown]

NARRATIVE: CASE EVENT DATE: 20150716
